FAERS Safety Report 14829330 (Version 2)
Quarter: 2018Q2

REPORT INFORMATION
  Report Type: Report from Study
  Country: AR (occurrence: AR)
  Receive Date: 20180430
  Receipt Date: 20180621
  Transmission Date: 20180711
  Serious: Yes (Other)
  Sender: FDA-Public Use
  Company Number: AR-BRISTOL-MYERS SQUIBB COMPANY-BMS-2018-036086

PATIENT
  Sex: Female

DRUGS (1)
  1. ABATACEPT [Suspect]
     Active Substance: ABATACEPT
     Indication: RHEUMATOID ARTHRITIS
     Dosage: 125 MG/ML, QWK
     Route: 058

REACTIONS (7)
  - Dysstasia [Unknown]
  - Pain [Unknown]
  - Gait inability [Not Recovered/Not Resolved]
  - Malaise [Unknown]
  - Ligament sprain [Not Recovered/Not Resolved]
  - Tuberculosis [Unknown]
  - Myalgia [Not Recovered/Not Resolved]
